FAERS Safety Report 15740414 (Version 1)
Quarter: 2018Q4

REPORT INFORMATION
  Report Type: Spontaneous
  Country: US (occurrence: US)
  Receive Date: 20181219
  Receipt Date: 20181219
  Transmission Date: 20190205
  Serious: No
  Sender: FDA-Public Use
  Company Number: None

PATIENT
  Age: 46 Year
  Sex: Female
  Weight: 62.1 kg

DRUGS (8)
  1. PLAQUENIL [Concomitant]
     Active Substance: HYDROXYCHLOROQUINE SULFATE
  2. LEVOTHYROXINE 75MCG TABLET GENERIC FOR SYNTHROID [Suspect]
     Active Substance: LEVOTHYROXINE SODIUM
     Indication: AUTOIMMUNE THYROIDITIS
     Dosage: ?          OTHER STRENGTH:MCG;QUANTITY:150 TABLET(S);?
     Route: 048
     Dates: start: 20181031, end: 20181218
  3. WELLBUTRIN [Concomitant]
     Active Substance: BUPROPION HYDROCHLORIDE
  4. GARDEN VEGGIES SUPPLEMENTS 1 PILL A DAY FOR PAST 1 YEAR [Concomitant]
  5. ENTYVIO [Concomitant]
     Active Substance: VEDOLIZUMAB
  6. HYALURONIC ACID WITH BIOCELL 900MG COLLAGEN AND MSM 900MG PER [Concomitant]
  7. LEVOTHYROXINE 75MCG TABLET GENERIC FOR SYNTHROID [Suspect]
     Active Substance: LEVOTHYROXINE SODIUM
     Indication: HYPOTHYROIDISM
     Dosage: ?          OTHER STRENGTH:MCG;QUANTITY:150 TABLET(S);?
     Route: 048
     Dates: start: 20181031, end: 20181218
  8. NEED THE LEVOTHYROXINE FOR HYPOTHYROID [Concomitant]

REACTIONS (2)
  - Drug ineffective [None]
  - Recalled product administered [None]

NARRATIVE: CASE EVENT DATE: 20181219
